FAERS Safety Report 7802879-X (Version None)
Quarter: 2011Q4

REPORT INFORMATION
  Report Type: 
  Country: None (occurrence: None)
  Receive Date: 20111007
  Receipt Date: 20110927
  Transmission Date: 20120403
  Serious: Yes (Other)
  Sender: FDA-Public Use
  Company Number: GB-UCBSA-027051

PATIENT
  Age: 37 Year
  Sex: Female

DRUGS (5)
  1. ACETAMINOPHEN [Suspect]
     Indication: SYMPHYSIOLYSIS
     Dosage: 1 G
  2. MS CONTIN [Suspect]
     Indication: SYMPHYSIOLYSIS
     Route: 048
     Dates: start: 20100922
  3. CITALOPRAM HYDROBROMIDE [Concomitant]
  4. ACETAMINOPHEN AND CODEINE PHOSPHATE [Suspect]
     Indication: SYMPHYSIOLYSIS
     Route: 048
  5. BUTRANS [Suspect]
     Indication: SYMPHYSIOLYSIS
     Route: 062
     Dates: start: 20101215, end: 20101229

REACTIONS (3)
  - STILLBIRTH [None]
  - MATERNAL EXPOSURE DURING PREGNANCY [None]
  - DRUG INEFFECTIVE [None]
